FAERS Safety Report 8848353 (Version 1)
Quarter: 2012Q4

REPORT INFORMATION
  Report Type: 
  Country: CA (occurrence: CA)
  Receive Date: 20121018
  Receipt Date: 20121018
  Transmission Date: 20130627
  Serious: Yes (Other)
  Sender: FDA-Public Use
  Company Number: PHHY2012CA093120

PATIENT
  Sex: Female

DRUGS (3)
  1. ACLASTA [Suspect]
     Indication: OSTEOPOROSIS
     Route: 042
     Dates: start: 20100917
  2. ACLASTA [Suspect]
     Route: 042
     Dates: start: 20110930
  3. ACLASTA [Suspect]
     Route: 042
     Dates: start: 20121012

REACTIONS (1)
  - Foot fracture [Recovered/Resolved]
